FAERS Safety Report 8528919 (Version 3)
Quarter: 2013Q1

REPORT INFORMATION
  Report Type: Spontaneous
  Country: US (occurrence: US)
  Receive Date: 20120425
  Receipt Date: 20130306
  Transmission Date: 20140127
  Serious: Yes (Hospitalization)
  Sender: FDA-Public Use
  Company Number: US-US-EMD SERONO, INC.-233992J08USA

PATIENT
  Age: 38 None
  Sex: Female
  Weight: 60 kg

DRUGS (13)
  1. REBIF [Suspect]
     Indication: MULTIPLE SCLEROSIS
     Route: 058
     Dates: start: 20080327, end: 20100127
  2. REBIF [Suspect]
     Route: 058
     Dates: start: 20100222
  3. REBIF [Suspect]
  4. INSULIN [Concomitant]
     Indication: DIABETES MELLITUS
     Dates: start: 20080106
  5. NOVOLOG INSULIN [Concomitant]
     Indication: TYPE 1 DIABETES MELLITUS
  6. BACLOFEN [Concomitant]
     Indication: MUSCLE SPASMS
  7. INTRAVENOUS STEROID [Concomitant]
     Indication: PRODUCT USED FOR UNKNOWN INDICATION
     Route: 042
     Dates: start: 200803
  8. TYLENOL [Concomitant]
     Indication: PREMEDICATION
  9. TYLENOL [Concomitant]
     Indication: BACK PAIN
  10. TYLENOL [Concomitant]
     Indication: MUSCLE TIGHTNESS
  11. NEURONTIN [Concomitant]
     Indication: MUSCLE TIGHTNESS
     Dates: start: 20090317
  12. NEURONTIN [Concomitant]
     Indication: BACK PAIN
  13. AMPYRA [Concomitant]
     Indication: PRODUCT USED FOR UNKNOWN INDICATION

REACTIONS (11)
  - Diabetic ketoacidosis [Recovered/Resolved]
  - Diabetes mellitus inadequate control [Not Recovered/Not Resolved]
  - Staphylococcal infection [Recovered/Resolved]
  - Liver function test abnormal [Unknown]
  - Blood glucose decreased [Not Recovered/Not Resolved]
  - Insomnia [Unknown]
  - Alopecia [Not Recovered/Not Resolved]
  - Multiple sclerosis relapse [Recovering/Resolving]
  - Urinary incontinence [Unknown]
  - Red blood cell count decreased [Unknown]
  - White blood cell count decreased [Unknown]
